FAERS Safety Report 7154491-6 (Version None)
Quarter: 2010Q4

REPORT INFORMATION
  Report Type: 
  Country: None (occurrence: None)
  Receive Date: 20101213
  Receipt Date: 20101210
  Transmission Date: 20110411
  Serious: Yes (Hospitalization)
  Sender: FDA-Public Use
  Company Number: HU-BRISTOL-MYERS SQUIBB COMPANY-15344401

PATIENT
  Age: 70 Year
  Sex: Female

DRUGS (4)
  1. BLINDED: SAXAGLIPTIN [Suspect]
     Indication: TYPE 2 DIABETES MELLITUS
     Dosage: DRUG INTERRUPTED ON 24-SEP-2010
     Route: 048
     Dates: start: 20100818
  2. BLINDED: PLACEBO [Suspect]
     Indication: TYPE 2 DIABETES MELLITUS
     Dosage: DRUG INTERRUPTED ON 24-SEP-2010
     Route: 048
     Dates: start: 20100818
  3. METFORMIN HCL [Suspect]
     Indication: TYPE 2 DIABETES MELLITUS
     Route: 048
  4. ASPIRIN [Concomitant]

REACTIONS (1)
  - PANCREATITIS [None]
